FAERS Safety Report 8844641 (Version 1)
Quarter: 2012Q4

REPORT INFORMATION
  Report Type: 
  Country: US (occurrence: US)
  Receive Date: 20121017
  Receipt Date: 20121017
  Transmission Date: 20130627
  Serious: No
  Sender: FDA-Public Use
  Company Number: US-PFIZER INC-2012257759

PATIENT
  Age: 61 Year
  Sex: Female
  Weight: 73.5 kg

DRUGS (8)
  1. NEURONTIN [Suspect]
     Indication: DIABETIC NEUROPATHY
     Dosage: 300 mg, 1x/day
  2. ALLOPURINOL [Concomitant]
     Indication: BLOOD URIC ACID ABNORMAL
     Dosage: 100 mg, daily
  3. BUSPIRONE [Concomitant]
     Indication: ANXIETY
     Dosage: 5 mg, 3x/day
  4. LASIX [Concomitant]
     Indication: DIURETIC THERAPY
     Dosage: 40 mg, 2x/day
  5. METFORMIN [Concomitant]
     Indication: DIABETES MELLITUS
     Dosage: 100 mg, 2x/day
  6. PROTONIX [Concomitant]
     Indication: GASTROOESOPHAGEAL REFLUX DISEASE
     Dosage: 40 mg, daily
  7. VYTORIN [Concomitant]
     Indication: BLOOD CHOLESTEROL ABNORMAL
     Dosage: 10/40, mg, daily
  8. GLIPIZIDE [Concomitant]
     Indication: DIABETES MELLITUS
     Dosage: 5 mg, as needed

REACTIONS (1)
  - Drug ineffective [Unknown]
